FAERS Safety Report 18187584 (Version 2)
Quarter: 2020Q3

REPORT INFORMATION
  Report Type: Report from Study
  Country: GB (occurrence: GB)
  Receive Date: 20200824
  Receipt Date: 20200922
  Transmission Date: 20201103
  Serious: Yes (Hospitalization)
  Sender: FDA-Public Use
  Company Number: NVSC2020GB231368

PATIENT
  Sex: Male

DRUGS (1)
  1. HYRIMOZ [Suspect]
     Active Substance: ADALIMUMAB-ADAZ
     Indication: AXIAL SPONDYLOARTHRITIS
     Dosage: 40 MG, Q2W
     Route: 058
     Dates: start: 2019

REACTIONS (2)
  - Asthenia [Unknown]
  - Nephrolithiasis [Unknown]
